FAERS Safety Report 5205637-8 (Version None)
Quarter: 2007Q1

REPORT INFORMATION
  Report Type: 
  Country: None (occurrence: None)
  Receive Date: 20070105
  Receipt Date: 20070105
  Transmission Date: 20070707
  Serious: Yes (Hospitalization)
  Sender: FDA-Public Use
  Company Number: None

PATIENT
  Age: 73 Year
  Sex: Female
  Weight: 53.978 kg

DRUGS (5)
  1. LISINOPRIL [Suspect]
     Indication: HYPERTENSION
     Dosage: PO Q DAY
     Route: 048
     Dates: start: 20040101
  2. METOPROLOL SUCCINATE [Concomitant]
  3. AMLODIPINE [Concomitant]
  4. PREVASTATIN [Concomitant]
  5. CLOPIDOGREL [Concomitant]

REACTIONS (3)
  - DYSPNOEA [None]
  - LARYNGEAL OEDEMA [None]
  - SWOLLEN TONGUE [None]
